FAERS Safety Report 6240312-2 (Version None)
Quarter: 2009Q2

REPORT INFORMATION
  Report Type: 
  Country: None (occurrence: None)
  Receive Date: 20090623
  Receipt Date: 20080723
  Transmission Date: 20091009
  Serious: No
  Sender: FDA-Public Use
  Company Number: US-ASTRAZENECA-2008UW13287

PATIENT
  Age: 8 Year
  Sex: Male
  Weight: 39.5 kg

DRUGS (2)
  1. PULMICORT FLEXHALER [Suspect]
     Indication: ASTHMA
     Dosage: 180 UG
     Route: 055
     Dates: start: 20080627
  2. VARIVAX [Concomitant]
     Dates: start: 20080627

REACTIONS (2)
  - CHILLS [None]
  - HEADACHE [None]
